FAERS Safety Report 23852786 (Version 1)
Quarter: 2024Q2

REPORT INFORMATION
  Report Type: Spontaneous
  Country: US (occurrence: US)
  Receive Date: 20240514
  Receipt Date: 20240514
  Transmission Date: 20240716
  Serious: Yes (Other)
  Sender: FDA-Public Use
  Company Number: US-JNJFOC-20240512513

PATIENT
  Age: 23 Year
  Sex: Male
  Weight: 113.5 kg

DRUGS (4)
  1. INVEGA SUSTENNA [Suspect]
     Active Substance: PALIPERIDONE PALMITATE
     Indication: Schizoaffective disorder
     Route: 030
     Dates: start: 2021
  2. INVEGA SUSTENNA [Suspect]
     Active Substance: PALIPERIDONE PALMITATE
  3. INVEGA SUSTENNA [Suspect]
     Active Substance: PALIPERIDONE PALMITATE
  4. COGENTIN [Concomitant]
     Active Substance: BENZTROPINE MESYLATE

REACTIONS (7)
  - Hallucination [Unknown]
  - Dizziness [Unknown]
  - Diarrhoea [Unknown]
  - Gastrointestinal pain [Unknown]
  - Dyskinesia [Unknown]
  - Amnesia [Unknown]
  - Weight increased [Unknown]
